FAERS Safety Report 8138429-0 (Version None)
Quarter: 2012Q1

REPORT INFORMATION
  Report Type: 
  Country: None (occurrence: None)
  Receive Date: 20120215
  Receipt Date: 20120208
  Transmission Date: 20120608
  Serious: Yes (Hospitalization)
  Sender: FDA-Public Use
  Company Number: KR-B.I. PHARMACEUTICALS,INC./RIDGEFIELD-2012-CS-00161RK

PATIENT
  Age: 74 Year
  Sex: Female
  Weight: 52 kg

DRUGS (8)
  1. AMBROXOL [Concomitant]
  2. ASPIRIN [Concomitant]
  3. TENORMIN [Concomitant]
  4. ALDACTONE(SPINOLOLACTONE) [Concomitant]
  5. DIOBAN(VALSARTAN) [Concomitant]
  6. NIACIN [Concomitant]
  7. LASIX [Concomitant]
  8. PRADAXA [Suspect]
     Dosage: 300 MG
     Route: 048
     Dates: start: 20120126

REACTIONS (2)
  - GINGIVAL BLEEDING [None]
  - DYSPNOEA [None]
